FAERS Safety Report 7743768-9 (Version None)
Quarter: 2011Q3

REPORT INFORMATION
  Report Type: 
  Country: None (occurrence: None)
  Receive Date: 20110909
  Receipt Date: 20110909
  Transmission Date: 20111222
  Serious: Yes (Other)
  Sender: FDA-Public Use
  Company Number: None

PATIENT
  Age: 79 Year
  Sex: Female
  Weight: 95.2554 kg

DRUGS (3)
  1. AMLODIPINE BESYLATE [Suspect]
     Indication: HYPERTENSION
     Dosage: 1 TABLET DAILY BY MOUTH
     Route: 048
     Dates: start: 20110101
  2. AMLODIPINE BESYLATE [Suspect]
     Indication: HYPERTENSION
     Dosage: 1 TABLET DAILY BY MOUTH
     Route: 048
     Dates: start: 20060101
  3. AMLODIPINE BESYLATE [Suspect]

REACTIONS (7)
  - HALLUCINATION, VISUAL [None]
  - HOT FLUSH [None]
  - OEDEMA PERIPHERAL [None]
  - FORMICATION [None]
  - BLOOD PRESSURE INCREASED [None]
  - PALPITATIONS [None]
  - DIZZINESS [None]
